FAERS Safety Report 8167699-8 (Version None)
Quarter: 2012Q1

REPORT INFORMATION
  Report Type: 
  Country: None (occurrence: None)
  Receive Date: 20120227
  Receipt Date: 20120216
  Transmission Date: 20120608
  Serious: Yes (Hospitalization)
  Sender: FDA-Public Use
  Company Number: BE-ROCHE-1040930

PATIENT
  Sex: Male
  Weight: 80 kg

DRUGS (9)
  1. METOPROLOL SUCCINATE [Concomitant]
     Indication: CARDIAC FAILURE
     Route: 048
     Dates: start: 20110501
  2. CORDARONE [Concomitant]
     Indication: CARDIAC FAILURE
     Route: 048
     Dates: start: 20110501
  3. ACETYLSALICYLIC ACID SRT [Concomitant]
     Route: 048
  4. SIMVASTATIN [Concomitant]
  5. XELODA [Suspect]
     Indication: NEOPLASM MALIGNANT
     Route: 048
     Dates: start: 20120126, end: 20120209
  6. LASIX - SLOW RELEASE [Concomitant]
     Indication: CARDIAC FAILURE
     Route: 048
     Dates: start: 20110501
  7. PANTOMED (PANTOPRAZOLE) [Concomitant]
     Indication: PROPHYLAXIS AGAINST GASTROINTESTINAL ULCER
     Route: 048
     Dates: start: 20110501
  8. TAMSULOSIN HCL [Concomitant]
     Route: 048
  9. D-CURE (VITAMIN D) [Concomitant]

REACTIONS (1)
  - MUCOSAL INFLAMMATION [None]
